FAERS Safety Report 6790291-4 (Version None)
Quarter: 2010Q2

REPORT INFORMATION
  Report Type: 
  Country: None (occurrence: None)
  Receive Date: 20100624
  Receipt Date: 20100616
  Transmission Date: 20101027
  Serious: Yes (Disabling)
  Sender: FDA-Public Use
  Company Number: GB-ALLERGAN-1007913US

PATIENT
  Age: 43 Year
  Sex: Female

DRUGS (1)
  1. ACULAR [Suspect]
     Indication: BLEPHARITIS
     Dosage: UNK
     Route: 047
     Dates: start: 20100112, end: 20100203

REACTIONS (1)
  - ASTHMA [None]
